FAERS Safety Report 9663812 (Version 1)
Quarter: 2013Q4

REPORT INFORMATION
  Report Type: Spontaneous
  Country: US (occurrence: US)
  Receive Date: 20131101
  Receipt Date: 20131101
  Transmission Date: 20140711
  Serious: No
  Sender: FDA-Public Use
  Company Number: US-BAYER-2013-133276

PATIENT
  Sex: Female

DRUGS (2)
  1. ALEVE TABLET [Suspect]
     Indication: BACK PAIN
     Dosage: 1 OR 2 TABLETS, PRN
     Route: 048
     Dates: start: 201304
  2. ALEVE TABLET [Suspect]
     Indication: BACK PAIN
     Dosage: 5 DF, UNK
     Route: 048
     Dates: start: 20131028, end: 20131029

REACTIONS (1)
  - Incorrect dose administered [None]
